FAERS Safety Report 9849483 (Version 1)
Quarter: 2014Q1

REPORT INFORMATION
  Report Type: Spontaneous
  Country: GB (occurrence: None)
  Receive Date: 20140124
  Receipt Date: 20140124
  Transmission Date: 20141002
  Serious: Yes (Other)
  Sender: FDA-Public Use
  Company Number: KAD201401-000078

PATIENT
  Sex: Male

DRUGS (4)
  1. RIBAVIRIN (RIBAVIRIN) [Suspect]
  2. TELAPREVIR (TELAPREVIR) [Suspect]
     Dosage: TABLET, 750 MG, THRICE DAILY,
     Route: 048
  3. PEGINTERFERON ALFA-2B (PEGINTERFERON ALFA-2B) [Suspect]
  4. METHADONE (METHADONE) [Concomitant]

REACTIONS (1)
  - Convulsion [None]
